FAERS Safety Report 15756227 (Version 1)
Quarter: 2018Q4

REPORT INFORMATION
  Report Type: Spontaneous
  Country: SE (occurrence: SE)
  Receive Date: 20181224
  Receipt Date: 20181224
  Transmission Date: 20190205
  Serious: Yes (Other)
  Sender: FDA-Public Use
  Company Number: SE-009507513-1811SWE012928

PATIENT
  Age: 73 Year
  Sex: Male

DRUGS (16)
  1. CLOPIDOGREL [Concomitant]
     Active Substance: CLOPIDOGREL BISULFATE
  2. FURIX [Concomitant]
     Active Substance: FUROSEMIDE
     Dosage: UNK, PRN
  3. BISOPROLOL [Concomitant]
     Active Substance: BISOPROLOL
  4. MORFIN [Concomitant]
     Active Substance: MORPHINE SULFATE
     Dosage: UNK, PRN
  5. ENALAPRIL [Concomitant]
     Active Substance: ENALAPRIL
  6. NITROLINGUAL [Concomitant]
     Active Substance: NITROGLYCERIN
     Dosage: UNK, PRN
  7. CANODERM [Concomitant]
  8. ALVEDON [Concomitant]
     Active Substance: ACETAMINOPHEN
  9. LOCOID [Concomitant]
     Active Substance: HYDROCORTISONE BUTYRATE
  10. COCILLANA ETYFIN (OLD FORMULA) [Concomitant]
  11. NOVORAPID [Concomitant]
     Active Substance: INSULIN ASPART
  12. KEYTRUDA [Suspect]
     Active Substance: PEMBROLIZUMAB
     Indication: ADENOSQUAMOUS CELL CARCINOMA
     Dosage: 200 MILLIGRAM, Q3W
     Route: 042
     Dates: start: 20170626
  13. FENTANYL. [Concomitant]
     Active Substance: FENTANYL
  14. MOXALOLE [Concomitant]
  15. OMEPRAZOLE. [Concomitant]
     Active Substance: OMEPRAZOLE
  16. FINASTERIDE. [Concomitant]
     Active Substance: FINASTERIDE

REACTIONS (6)
  - Skin hypertrophy [Recovering/Resolving]
  - Skin discolouration [Unknown]
  - Pruritus [Recovered/Resolved]
  - Erythema [Recovered/Resolved]
  - Connective tissue disorder [Unknown]
  - Dermatitis [Recovered/Resolved with Sequelae]

NARRATIVE: CASE EVENT DATE: 20170801
